FAERS Safety Report 8920107 (Version 1)
Quarter: 2012Q4

REPORT INFORMATION
  Report Type: 
  Country: BE (occurrence: BE)
  Receive Date: 20121120
  Receipt Date: 20121120
  Transmission Date: 20130627
  Serious: Yes (Other)
  Sender: FDA-Public Use
  Company Number: BE-AMGEN-BELSP2012073608

PATIENT

DRUGS (3)
  1. XGEVA [Suspect]
     Indication: METASTASES TO BONE
     Dosage: UNK
  2. CALCIUM [Concomitant]
     Dosage: 1000 mg, UNK
  3. VITAMIN D                          /00318501/ [Concomitant]
     Dosage: 800 IU, UNK

REACTIONS (2)
  - Convulsion [Unknown]
  - Hypocalcaemia [Unknown]
